FAERS Safety Report 14616287 (Version 1)
Quarter: 2018Q1

REPORT INFORMATION
  Report Type: Spontaneous
  Country: US (occurrence: US)
  Receive Date: 20180309
  Receipt Date: 20180309
  Transmission Date: 20180509
  Serious: No
  Sender: FDA-Public Use
  Company Number: US-PFIZER INC-2018089386

PATIENT
  Age: 50 Year
  Sex: Female
  Weight: 76.66 kg

DRUGS (6)
  1. PRISTIQ EXTENDED-RELEASE [Suspect]
     Active Substance: DESVENLAFAXINE SUCCINATE
     Indication: DEPRESSION
     Dosage: 25 MG, 1X/DAY
     Route: 048
     Dates: start: 20180228
  2. ATEZOLIZUMAB. [Concomitant]
     Active Substance: ATEZOLIZUMAB
     Indication: IMMUNOMODULATORY THERAPY
     Dosage: 1200 MG, UNK (TWICE)
     Route: 042
     Dates: start: 20180111
  3. KLONOPIN [Concomitant]
     Active Substance: CLONAZEPAM
     Indication: ANXIETY
     Dosage: 0.5 MG, 3X/DAY
  4. SEROQUEL [Concomitant]
     Active Substance: QUETIAPINE FUMARATE
     Indication: INSOMNIA
     Dosage: 100 MG, 1X/DAY (AT NIGHT)
     Route: 048
  5. KLONOPIN [Concomitant]
     Active Substance: CLONAZEPAM
     Dosage: 1 MG, 3X/DAY
     Route: 048
     Dates: start: 201711
  6. ATEZOLIZUMAB. [Concomitant]
     Active Substance: ATEZOLIZUMAB
     Indication: NON-SMALL CELL LUNG CANCER
     Dosage: 1200 MG, UNK (TWICE)
     Route: 042
     Dates: start: 20171221

REACTIONS (3)
  - Somnolence [Not Recovered/Not Resolved]
  - Abdominal pain upper [Recovered/Resolved with Sequelae]
  - Vomiting [Recovered/Resolved with Sequelae]

NARRATIVE: CASE EVENT DATE: 20180228
